FAERS Safety Report 22831789 (Version 4)
Quarter: 2023Q4

REPORT INFORMATION
  Report Type: Report from Study
  Country: US (occurrence: US)
  Receive Date: 20230817
  Receipt Date: 20231206
  Transmission Date: 20240110
  Serious: Yes (Other)
  Sender: FDA-Public Use
  Company Number: US-ALLERGAN-2303085US

PATIENT

DRUGS (1)
  1. QULIPTA [Suspect]
     Active Substance: ATOGEPANT
     Indication: Migraine
     Dosage: FORM STRENGTH 10 MG
     Route: 048

REACTIONS (5)
  - Spinal operation [Unknown]
  - Drug ineffective [Unknown]
  - Migraine [Unknown]
  - Muscle tightness [Unknown]
  - Neck pain [Unknown]
